FAERS Safety Report 11393654 (Version 3)
Quarter: 2015Q3

REPORT INFORMATION
  Report Type: Report from Study
  Country: US (occurrence: US)
  Receive Date: 20150819
  Receipt Date: 20150923
  Transmission Date: 20151125
  Serious: Yes (Hospitalization, Other)
  Sender: FDA-Public Use
  Company Number: US-AMGEN-USASP2015082322

PATIENT
  Age: 50 Year
  Sex: Female

DRUGS (1)
  1. ENBREL [Suspect]
     Active Substance: ETANERCEPT
     Indication: PRODUCT USED FOR UNKNOWN INDICATION
     Dosage: 50 MG, UNK
     Route: 065
     Dates: start: 201507, end: 20150910

REACTIONS (8)
  - Gastroenteritis [Unknown]
  - Diarrhoea [Unknown]
  - Liver disorder [Unknown]
  - Viral infection [Unknown]
  - Headache [Unknown]
  - Loss of consciousness [Unknown]
  - Vomiting [Unknown]
  - Device issue [Unknown]

NARRATIVE: CASE EVENT DATE: 2015
